FAERS Safety Report 17702818 (Version 1)
Quarter: 2020Q2

REPORT INFORMATION
  Report Type: Spontaneous
  Country: US (occurrence: US)
  Receive Date: 20200423
  Receipt Date: 20200423
  Transmission Date: 20200714
  Serious: Yes (Other)
  Sender: FDA-Public Use
  Company Number: US-JAZZ-JPI-P-005838

PATIENT
  Age: 22 Year
  Sex: Female
  Weight: 111.36 kg

DRUGS (7)
  1. VENLAFAXINE [Concomitant]
     Active Substance: VENLAFAXINE HYDROCHLORIDE
     Indication: DEPRESSION
  2. XYREM [Suspect]
     Active Substance: SODIUM OXYBATE
     Dosage: 3.75 GRAM, BID
     Route: 048
     Dates: start: 20110413
  3. XYREM [Suspect]
     Active Substance: SODIUM OXYBATE
     Indication: CATAPLEXY
     Dosage: 3 GRAM, BID
     Route: 048
     Dates: start: 2008
  4. XYREM [Suspect]
     Active Substance: SODIUM OXYBATE
     Dosage: SINGLE (3.75 GM FIRST DOSE/3.5 GM SECOND DOSE)
     Route: 048
     Dates: start: 20090714
  5. XYREM [Suspect]
     Active Substance: SODIUM OXYBATE
     Dosage: 3 GRAM, BID
     Route: 048
  6. XYREM [Suspect]
     Active Substance: SODIUM OXYBATE
     Indication: NARCOLEPSY
     Dosage: 2.25 GRAM, BID
     Route: 048
     Dates: start: 20080910
  7. VENLAFAXINE [Concomitant]
     Active Substance: VENLAFAXINE HYDROCHLORIDE
     Indication: ANXIETY
     Route: 048
     Dates: start: 200908

REACTIONS (10)
  - Weight decreased [Recovered/Resolved]
  - Gingivitis [Recovered/Resolved]
  - Anxiety [Recovered/Resolved]
  - Depression [Recovering/Resolving]
  - Therapeutic response decreased [Unknown]
  - Product administration error [Unknown]
  - Condition aggravated [Unknown]
  - Abulia [Recovered/Resolved]
  - Acne cystic [Unknown]
  - Decreased appetite [Not Recovered/Not Resolved]

NARRATIVE: CASE EVENT DATE: 200809
